FAERS Safety Report 13977638 (Version 1)
Quarter: 2017Q3

REPORT INFORMATION
  Report Type: Spontaneous
  Country: US (occurrence: US)
  Receive Date: 20170915
  Receipt Date: 20170915
  Transmission Date: 20171128
  Serious: Yes (Disabling)
  Sender: FDA-Public Use
  Company Number: None

PATIENT
  Sex: Female
  Weight: 65.7 kg

DRUGS (8)
  1. ANTIHISTAMINE [Concomitant]
     Active Substance: ANTIHISTAMINES NOS
  2. SENNA LAXATIVE [Concomitant]
     Active Substance: SENNOSIDES
  3. FISH OIL [Concomitant]
     Active Substance: FISH OIL
  4. XIIDRA [Suspect]
     Active Substance: LIFITEGRAST
     Indication: DRY EYE
     Dosage: ?          QUANTITY:1 DROP(S);?
     Route: 047
     Dates: start: 20170829, end: 20170904
  5. RANITIDINE. [Concomitant]
     Active Substance: RANITIDINE
  6. BENTYL [Concomitant]
     Active Substance: DICYCLOMINE HYDROCHLORIDE
  7. MYLANTA [Concomitant]
     Active Substance: ALUMINUM HYDROXIDE\DIMETHICONE\MAGNESIUM HYDROXIDE
  8. CALCIUM CARBONATE. [Concomitant]
     Active Substance: CALCIUM CARBONATE

REACTIONS (3)
  - Eye discharge [None]
  - Eye infection [None]
  - Product contamination [None]

NARRATIVE: CASE EVENT DATE: 20170904
